FAERS Safety Report 23827689 (Version 3)
Quarter: 2024Q4

REPORT INFORMATION
  Report Type: Spontaneous
  Country: US (occurrence: US)
  Receive Date: 20240507
  Receipt Date: 20241206
  Transmission Date: 20250114
  Serious: No
  Sender: BRISTOL-MYERS SQUIBB COMPANY
  Company Number: US-BRISTOL-MYERS SQUIBB COMPANY-2024-070120

PATIENT
  Age: 70 Year
  Sex: Female
  Weight: 46.72 kg

DRUGS (2)
  1. REVLIMID [Suspect]
     Active Substance: LENALIDOMIDE
     Indication: Plasma cell myeloma
     Dosage: DAILY FOR 21 DAYS
     Route: 048
  2. REVLIMID [Suspect]
     Active Substance: LENALIDOMIDE
     Indication: Plasma cell myeloma in remission
     Route: 048

REACTIONS (6)
  - Swelling [Unknown]
  - Fluid retention [Unknown]
  - Fatigue [Unknown]
  - Depressed mood [Recovering/Resolving]
  - Sluggishness [Recovering/Resolving]
  - Constipation [Recovering/Resolving]
